FAERS Safety Report 21715494 (Version 2)
Quarter: 2023Q1

REPORT INFORMATION
  Report Type: Spontaneous
  Country: BR (occurrence: BR)
  Receive Date: 20221212
  Receipt Date: 20230111
  Transmission Date: 20230417
  Serious: Yes (Other)
  Sender: FDA-Public Use
  Company Number: BR-TAKEDA-2022TUS095583

PATIENT
  Sex: Female

DRUGS (4)
  1. DEXILANT [Suspect]
     Active Substance: DEXLANSOPRAZOLE
     Indication: Oesophageal ulcer
     Dosage: 60 MILLIGRAM, QD
     Route: 065
     Dates: start: 20221026
  2. DEXILANT [Suspect]
     Active Substance: DEXLANSOPRAZOLE
     Dosage: 60 MILLIGRAM, QD
     Route: 065
  3. PANTOPRAZOLE [Suspect]
     Active Substance: PANTOPRAZOLE
     Indication: Product used for unknown indication
     Dosage: UNK
     Route: 065
  4. TAMOXIFEN [Concomitant]
     Active Substance: TAMOXIFEN
     Indication: Breast disorder
     Dosage: 20 MILLIGRAM

REACTIONS (21)
  - Dysentery [Unknown]
  - Off label use [Unknown]
  - Malaise [Unknown]
  - Blood pressure increased [Unknown]
  - Peripheral swelling [Unknown]
  - Pain in extremity [Unknown]
  - Urinary tract infection [Unknown]
  - Rash macular [Unknown]
  - Condition aggravated [Unknown]
  - Heart rate increased [Unknown]
  - Skin plaque [Recovering/Resolving]
  - Drug hypersensitivity [Unknown]
  - Panic reaction [Unknown]
  - Tachycardia [Unknown]
  - Chest pain [Unknown]
  - Pain [Unknown]
  - Anxiety [Unknown]
  - Viral infection [Unknown]
  - Bursitis [Unknown]
  - Dizziness [Unknown]
  - Abnormal faeces [Unknown]

NARRATIVE: CASE EVENT DATE: 20221118
